FAERS Safety Report 6304253-4 (Version None)
Quarter: 2009Q3

REPORT INFORMATION
  Report Type: 
  Country: None (occurrence: None)
  Receive Date: 20090811
  Receipt Date: 20090805
  Transmission Date: 20100115
  Serious: Yes (Other)
  Sender: FDA-Public Use
  Company Number: US-TEVA-204951USA

PATIENT

DRUGS (1)
  1. ADDERALL 10 [Suspect]
     Route: 048

REACTIONS (6)
  - AGITATION [None]
  - DEPRESSION SUICIDAL [None]
  - DIZZINESS [None]
  - DRUG INEFFECTIVE [None]
  - FATIGUE [None]
  - LETHARGY [None]
